FAERS Safety Report 5320362-0 (Version None)
Quarter: 2007Q2

REPORT INFORMATION
  Report Type: 
  Country: None (occurrence: None)
  Receive Date: 20070509
  Receipt Date: 20070430
  Transmission Date: 20071010
  Serious: Yes (Hospitalization)
  Sender: FDA-Public Use
  Company Number: GB-ROCHE-496019

PATIENT
  Age: 63 Year
  Sex: Female
  Weight: 139 kg

DRUGS (2)
  1. XENICAL [Suspect]
     Indication: OBESITY
     Route: 048
     Dates: start: 20070326, end: 20070420
  2. UNSPECIFIED DRUG [Concomitant]

REACTIONS (1)
  - UMBILICAL HERNIA [None]
